FAERS Safety Report 10829348 (Version 1)
Quarter: 2015Q1

REPORT INFORMATION
  Report Type: Report from Study
  Country: US (occurrence: US)
  Receive Date: 20150219
  Receipt Date: 20150219
  Transmission Date: 20150721
  Serious: No
  Sender: FDA-Public Use
  Company Number: US-ABBVIE-14P-163-1187277-00

PATIENT
  Age: 32 Year
  Sex: Female

DRUGS (7)
  1. HUMIRA [Suspect]
     Active Substance: ADALIMUMAB
     Indication: PSORIASIS
     Dates: start: 20131113, end: 20131113
  2. HUMIRA [Suspect]
     Active Substance: ADALIMUMAB
     Dates: start: 20131212
  3. FOLIC ACID. [Concomitant]
     Active Substance: FOLIC ACID
     Indication: PRODUCT USED FOR UNKNOWN INDICATION
  4. HUMIRA [Suspect]
     Active Substance: ADALIMUMAB
  5. MMR [Concomitant]
     Indication: IMMUNISATION
     Dosage: ONE TIME DOSE
     Dates: start: 20140123, end: 20140123
  6. PRENATAL VITAMINS [Concomitant]
     Active Substance: VITAMINS
     Indication: PRODUCT USED FOR UNKNOWN INDICATION
  7. HUMIRA [Suspect]
     Active Substance: ADALIMUMAB
     Dates: start: 20131120, end: 20131120

REACTIONS (8)
  - Injection site pain [Not Recovered/Not Resolved]
  - Injection site haemorrhage [Unknown]
  - Incorrect dose administered [Unknown]
  - Axillary mass [Recovered/Resolved]
  - Psoriasis [Not Recovered/Not Resolved]
  - Wrong technique in drug usage process [Unknown]
  - Medication error [Recovered/Resolved]
  - Device issue [Unknown]

NARRATIVE: CASE EVENT DATE: 20131113
